FAERS Safety Report 6671730-6 (Version None)
Quarter: 2010Q2

REPORT INFORMATION
  Report Type: 
  Country: None (occurrence: None)
  Receive Date: 20100406
  Receipt Date: 20100406
  Transmission Date: 20101027
  Serious: Yes (Disabling, Other)
  Sender: FDA-Public Use
  Company Number: None

PATIENT
  Age: 37 Year
  Sex: Female
  Weight: 58 kg

DRUGS (1)
  1. BOTOX [Suspect]
     Indication: SKIN COSMETIC PROCEDURE
     Dosage: NOT SURE
     Dates: start: 20090925, end: 20100402

REACTIONS (13)
  - ANXIETY [None]
  - DIARRHOEA [None]
  - DRY EYE [None]
  - EYE PAIN [None]
  - EYELID PTOSIS [None]
  - FACIAL PARESIS [None]
  - INFLUENZA LIKE ILLNESS [None]
  - INSOMNIA [None]
  - MALAISE [None]
  - NERVOUSNESS [None]
  - PREMATURE AGEING [None]
  - RASH [None]
  - SKIN WRINKLING [None]
